FAERS Safety Report 8548620-7 (Version None)
Quarter: 2012Q3

REPORT INFORMATION
  Report Type: 
  Country: None (occurrence: None)
  Receive Date: 20120730
  Receipt Date: 20120718
  Transmission Date: 20120928
  Serious: Yes (Hospitalization)
  Sender: FDA-Public Use
  Company Number: US-BAYER-2012-015169

PATIENT
  Age: 40 Year
  Sex: Female
  Weight: 54.422 kg

DRUGS (2)
  1. YASMIN [Suspect]
     Indication: ACNE
     Dosage: UNK
     Dates: start: 20070426, end: 20070601
  2. ORTHO EVRA [Concomitant]

REACTIONS (6)
  - PULMONARY EMBOLISM [None]
  - PAIN [None]
  - ASTHENIA [None]
  - MENTAL DISORDER [None]
  - BACK PAIN [None]
  - INJURY [None]
